FAERS Safety Report 16668855 (Version 1)
Quarter: 2019Q3

REPORT INFORMATION
  Report Type: Spontaneous
  Country: US (occurrence: US)
  Receive Date: 20190805
  Receipt Date: 20190805
  Transmission Date: 20191004
  Serious: No
  Sender: FDA-Public Use
  Company Number: None

PATIENT
  Sex: Male

DRUGS (1)
  1. SEROQUEL [Suspect]
     Active Substance: QUETIAPINE FUMARATE
     Indication: PRODUCT USED FOR UNKNOWN INDICATION
     Dates: start: 20090805

REACTIONS (5)
  - Enlarged uvula [None]
  - Nasal congestion [None]
  - Constipation [None]
  - Somnolence [None]
  - Heart rate increased [None]

NARRATIVE: CASE EVENT DATE: 20090805
